FAERS Safety Report 5632844-2 (Version None)
Quarter: 2008Q1

REPORT INFORMATION
  Report Type: 
  Country: None (occurrence: None)
  Receive Date: 20080221
  Receipt Date: 20080218
  Transmission Date: 20080703
  Serious: Yes (Hospitalization)
  Sender: FDA-Public Use
  Company Number: FR-RB-000016-08

PATIENT
  Age: 34 Year
  Sex: Male

DRUGS (1)
  1. SUBUTEX [Suspect]
     Indication: DRUG USE FOR UNKNOWN INDICATION
     Dosage: PRESCRIBED 8 MG QD BUT TOOK 12 MG QD.
     Route: 065

REACTIONS (8)
  - ANXIETY [None]
  - DEPRESSION [None]
  - HOSPITALISATION [None]
  - IMPAIRED WORK ABILITY [None]
  - INCORRECT DOSE ADMINISTERED [None]
  - RESPIRATORY DISORDER [None]
  - TENSION [None]
  - WITHDRAWAL SYNDROME [None]
